FAERS Safety Report 24061501 (Version 1)
Quarter: 2024Q3

REPORT INFORMATION
  Report Type: Spontaneous
  Country: US (occurrence: None)
  Receive Date: 20240706
  Receipt Date: 20240706
  Transmission Date: 20241016
  Serious: Yes (Other)
  Sender: Public
  Company Number: None

PATIENT
  Age: 74 Year
  Sex: Female
  Weight: 81 kg

DRUGS (9)
  1. DILTIAZEM HYDROCHLORIDE [Suspect]
     Active Substance: DILTIAZEM HYDROCHLORIDE
     Indication: Hypertension
     Dosage: 1 CAPSULE DAILY ORAL
     Route: 048
     Dates: start: 20240701, end: 20240702
  2. LEVOTHYROXINE [Concomitant]
     Active Substance: LEVOTHYROXINE\LEVOTHYROXINE SODIUM
  3. lyrica generic [Concomitant]
  4. DILTIAZEM [Concomitant]
     Active Substance: DILTIAZEM
  5. MINOXIDIL [Concomitant]
     Active Substance: MINOXIDIL
  6. BENADRYL [Concomitant]
     Active Substance: DIPHENHYDRAMINE HYDROCHLORIDE
  7. multi-vitamin [Concomitant]
  8. MAGNESIUM [Concomitant]
  9. b complex [Concomitant]

REACTIONS (14)
  - Headache [None]
  - Dizziness [None]
  - Tinnitus [None]
  - Neuralgia [None]
  - Gait disturbance [None]
  - Nasal congestion [None]
  - Flushing [None]
  - Neck pain [None]
  - Tremor [None]
  - Oral discomfort [None]
  - Tongue discomfort [None]
  - Muscle spasms [None]
  - Pollakiuria [None]
  - Fatigue [None]

NARRATIVE: CASE EVENT DATE: 20240701
